FAERS Safety Report 12094219 (Version 1)
Quarter: 2016Q1

REPORT INFORMATION
  Report Type: Spontaneous
  Country: US (occurrence: US)
  Receive Date: 20160219
  Receipt Date: 20160219
  Transmission Date: 20160526
  Serious: No
  Sender: FDA-Public Use
  Company Number: US-NEPHRON PHARMACEUTICALS CORPORATION-1048130

PATIENT
  Age: 73 Year
  Sex: Female

DRUGS (2)
  1. ALBUTEROL SULFATE INHALATION SOLUTION, 0.083% [Suspect]
     Active Substance: ALBUTEROL SULFATE
     Indication: CHRONIC OBSTRUCTIVE PULMONARY DISEASE
     Route: 055
  2. OXYGEN. [Concomitant]
     Active Substance: OXYGEN

REACTIONS (7)
  - Expired product administered [None]
  - Epigastric discomfort [None]
  - Pain [Unknown]
  - Abdominal pain upper [Unknown]
  - Bronchitis [None]
  - General physical health deterioration [None]
  - Vomiting [Unknown]

NARRATIVE: CASE EVENT DATE: 20151215
